FAERS Safety Report 9705873 (Version 3)
Quarter: 2014Q1

REPORT INFORMATION
  Report Type: Report from Study
  Country: JP (occurrence: JP)
  Receive Date: 20131122
  Receipt Date: 20140130
  Transmission Date: 20141002
  Serious: Yes (Hospitalization)
  Sender: FDA-Public Use
  Company Number: JP-TAKEDA-2013TJP003023

PATIENT
  Age: 76 Year
  Sex: Female
  Weight: 57 kg

DRUGS (16)
  1. ALOGLIPTIN [Suspect]
     Indication: TYPE 2 DIABETES MELLITUS
     Dosage: 25 MG, QD
     Route: 048
     Dates: start: 20120626
  2. AMARYL [Concomitant]
     Indication: TYPE 2 DIABETES MELLITUS
     Dosage: 3 MG, 1 DAYS
     Route: 048
     Dates: end: 20130429
  3. AMARYL [Concomitant]
     Dosage: 1 MG, 1 DAYS
     Route: 048
     Dates: start: 20130430, end: 20130624
  4. AMARYL [Concomitant]
     Dosage: 0.5 MG,1 DAYS
     Route: 048
     Dates: start: 20130625, end: 20130722
  5. AMARYL [Concomitant]
     Dosage: 1 MG, 1 DAYS
     Route: 048
     Dates: start: 20130723
  6. METGLUCO [Concomitant]
     Indication: TYPE 2 DIABETES MELLITUS
     Dosage: 1500 MG, 1 DAYS
     Route: 048
  7. NILDILART [Concomitant]
     Dosage: 8 MG, 1 DAYS
     Route: 048
  8. OLMETEC [Concomitant]
     Dosage: 10 MG, 1 DAYS
     Route: 048
  9. BAYASPIRIN [Concomitant]
     Dosage: 100 MG,1 DAYS
     Route: 048
     Dates: end: 20130225
  10. PANALDINE [Concomitant]
     Dosage: 100 MG,1 DAYS
     Route: 048
     Dates: end: 20130225
  11. LOPRESOR                           /00376902/ [Concomitant]
     Dosage: 40 MG, 1 DAYS
     Route: 048
  12. THYRADIN-S [Concomitant]
     Dosage: 50 ?G,1 DAYS
     Route: 048
  13. LIPIDIL [Concomitant]
     Dosage: 160 MG,1 DAYS
     Route: 048
  14. LIPIDIL [Concomitant]
     Dosage: 1 DF, 1 DAYS
     Route: 048
     Dates: start: 20130528
  15. LIVALO [Concomitant]
     Dosage: 4 MG, 1 DAYS
     Route: 048
     Dates: end: 20130529
  16. PLAVIX [Concomitant]
     Dosage: 75 MG, 1 DAYS
     Route: 048
     Dates: start: 20130226

REACTIONS (15)
  - Aortic valve stenosis [Recovered/Resolved]
  - Condition aggravated [Recovered/Resolved]
  - Hyperglycaemia [Recovered/Resolved]
  - Blood pressure decreased [Recovered/Resolved]
  - Haemorrhage subcutaneous [Recovered/Resolved]
  - Decreased appetite [Recovered/Resolved]
  - Rectal discharge [Recovered/Resolved]
  - Weight decreased [Recovered/Resolved]
  - Nasopharyngitis [Recovered/Resolved]
  - Hypoaesthesia [Recovered/Resolved]
  - Arthropathy [Recovered/Resolved]
  - Hypoglycaemia [Recovered/Resolved]
  - Oedema peripheral [Unknown]
  - Headache [Recovered/Resolved]
  - Myalgia [Recovered/Resolved]
